FAERS Safety Report 11184398 (Version 1)
Quarter: 2015Q2

REPORT INFORMATION
  Report Type: Report from Study
  Country: US (occurrence: US)
  Receive Date: 20150612
  Receipt Date: 20150612
  Transmission Date: 20150821
  Serious: No
  Sender: FDA-Public Use
  Company Number: US-009507513-1505USA006235

PATIENT
  Sex: Female

DRUGS (1)
  1. IMPLANON [Suspect]
     Active Substance: ETONOGESTREL
     Dosage: UNK
     Route: 059
     Dates: start: 201409, end: 20150513

REACTIONS (4)
  - Metrorrhagia [Unknown]
  - Menstruation irregular [Unknown]
  - Weight increased [Unknown]
  - Device difficult to use [Unknown]
